FAERS Safety Report 21850163 (Version 2)
Quarter: 2024Q3

REPORT INFORMATION
  Report Type: Report from Study
  Country: US (occurrence: US)
  Receive Date: 20230111
  Receipt Date: 20240830
  Transmission Date: 20241016
  Serious: No
  Sender: SANOFI AVENTIS
  Company Number: US-SANOFI-01438996

PATIENT
  Age: 28 Year
  Sex: Female

DRUGS (1)
  1. DUPIXENT [Suspect]
     Active Substance: DUPILUMAB
     Indication: Eczema
     Dosage: 300 MG, QOW
     Route: 058

REACTIONS (6)
  - Injection site indentation [Unknown]
  - Injection site erythema [Unknown]
  - Injection site swelling [Unknown]
  - Injection site pruritus [Not Recovered/Not Resolved]
  - Eczema [Unknown]
  - Intentional dose omission [Unknown]

NARRATIVE: CASE EVENT DATE: 20230110
